APPROVED DRUG PRODUCT: SOLAGE
Active Ingredient: MEQUINOL; TRETINOIN
Strength: 2%;0.01%
Dosage Form/Route: SOLUTION;TOPICAL
Application: N020922 | Product #001
Applicant: ALMIRALL LLC
Approved: Dec 10, 1999 | RLD: No | RS: No | Type: DISCN